FAERS Safety Report 24072033 (Version 2)
Quarter: 2024Q3

REPORT INFORMATION
  Report Type: Spontaneous
  Country: RU (occurrence: RU)
  Receive Date: 20240710
  Receipt Date: 20240722
  Transmission Date: 20241017
  Serious: Yes (Life-Threatening)
  Sender: ABBVIE
  Company Number: RU-ABBOTT-2024A-1383573

PATIENT
  Age: 5 Year
  Sex: Female

DRUGS (1)
  1. CREON [Suspect]
     Active Substance: PANCRELIPASE AMYLASE\PANCRELIPASE LIPASE\PANCRELIPASE PROTEASE
     Indication: Product used for unknown indication
     Dosage: CREON 10000
     Route: 048
     Dates: start: 20230527

REACTIONS (13)
  - Pain [Recovered/Resolved]
  - Steatorrhoea [Recovered/Resolved]
  - Abnormal faeces [Recovered/Resolved]
  - Diarrhoea [Recovered/Resolved]
  - Frequent bowel movements [Recovered/Resolved]
  - Drug ineffective [Recovered/Resolved]
  - Diarrhoea [Recovered/Resolved]
  - Abdominal pain [Recovered/Resolved]
  - Abdominal pain [Recovered/Resolved]
  - Fatigue [Recovered/Resolved]
  - Defaecation disorder [Recovered/Resolved]
  - Depressed mood [Recovered/Resolved]
  - Rectal prolapse [Recovered/Resolved]

NARRATIVE: CASE EVENT DATE: 20230501
